FAERS Safety Report 11743671 (Version 9)
Quarter: 2018Q4

REPORT INFORMATION
  Report Type: Report from Study
  Country: CR (occurrence: CR)
  Receive Date: 20151116
  Receipt Date: 20181110
  Transmission Date: 20190204
  Serious: Yes (Hospitalization, Other)
  Sender: FDA-Public Use
  Company Number: PHHY2015CR149082

PATIENT
  Age: 64 Year
  Sex: Male
  Weight: 93 kg

DRUGS (3)
  1. SANDOSTATIN LAR DEPOT [Suspect]
     Active Substance: OCTREOTIDE ACETATE
     Dosage: 40 MG, UNK
     Route: 065
  2. SANDOSTATIN LAR DEPOT [Suspect]
     Active Substance: OCTREOTIDE ACETATE
     Indication: BRAIN NEOPLASM
     Dosage: 1.5 DF, QMO
     Route: 030
  3. ACETYLSALICYLIC ACID [Concomitant]
     Active Substance: ASPIRIN
     Indication: PRODUCT USED FOR UNKNOWN INDICATION
     Route: 065

REACTIONS (21)
  - Pain [Recovering/Resolving]
  - Hypoacusis [Unknown]
  - Tumour pain [Unknown]
  - Haematochezia [Unknown]
  - Oedema peripheral [Unknown]
  - Joint dislocation [Unknown]
  - Pyrexia [Unknown]
  - Hypoaesthesia [Unknown]
  - Vision blurred [Unknown]
  - Balance disorder [Unknown]
  - Syncope [Unknown]
  - Cardiac disorder [Unknown]
  - Product use in unapproved indication [Unknown]
  - Prostate cancer [Recovering/Resolving]
  - Malaise [Unknown]
  - Gait disturbance [Unknown]
  - Memory impairment [Unknown]
  - Dysuria [Recovering/Resolving]
  - Brain neoplasm [Unknown]
  - Abdominal pain upper [Unknown]
  - Constipation [Unknown]

NARRATIVE: CASE EVENT DATE: 2015
